FAERS Safety Report 5972301-7 (Version None)
Quarter: 2008Q4

REPORT INFORMATION
  Report Type: 
  Country: None (occurrence: None)
  Receive Date: 20081201
  Receipt Date: 20080715
  Transmission Date: 20090506
  Serious: Yes (Life-Threatening, Hospitalization, Other)
  Sender: FDA-Public Use
  Company Number: US-TEVA-174713USA

PATIENT
  Age: 21 Year
  Sex: Male
  Weight: 72.64 kg

DRUGS (2)
  1. SALBUTAMOL SULFATE INHALATION, 0.09 MG [Suspect]
     Indication: ASTHMA
     Dosage: 2 PUFFS WHEN NEEDED/6-10 TIMES/DAY
     Route: 048
     Dates: start: 20070714, end: 20080512
  2. ALBUTEROL [Suspect]

REACTIONS (1)
  - DRUG INEFFECTIVE [None]
